FAERS Safety Report 6911063-3 (Version None)
Quarter: 2010Q3

REPORT INFORMATION
  Report Type: 
  Country: None (occurrence: None)
  Receive Date: 20100806
  Receipt Date: 20100727
  Transmission Date: 20110219
  Serious: Yes (Other)
  Sender: FDA-Public Use
  Company Number: US-JNJCH-2010011468

PATIENT
  Sex: Female
  Weight: 10.4 kg

DRUGS (2)
  1. BENADRYL [Suspect]
     Indication: PYREXIA
     Dosage: TEXT:THREE TIMES PER DAY
     Route: 048
     Dates: start: 20100415, end: 20100426
  2. ACETAMINOPHEN [Suspect]
     Indication: PRODUCT USED FOR UNKNOWN INDICATION
     Dosage: TEXT:UNKNOWN
     Route: 048

REACTIONS (2)
  - PRODUCT QUALITY ISSUE [None]
  - STRABISMUS [None]
